FAERS Safety Report 13163530 (Version 2)
Quarter: 2017Q2

REPORT INFORMATION
  Report Type: Spontaneous
  Country: US (occurrence: US)
  Receive Date: 20170130
  Receipt Date: 20170404
  Transmission Date: 20170830
  Serious: No
  Sender: FDA-Public Use
  Company Number: US-ELI_LILLY_AND_COMPANY-US201608001309

PATIENT
  Sex: Female

DRUGS (2)
  1. CYMBALTA [Suspect]
     Active Substance: DULOXETINE HYDROCHLORIDE
     Indication: PAIN
     Dosage: 20 MG, UNKNOWN
     Route: 065
     Dates: start: 2004
  2. CYMBALTA [Suspect]
     Active Substance: DULOXETINE HYDROCHLORIDE
     Indication: ANXIETY
     Dosage: 60 MG, UNKNOWN
     Route: 065

REACTIONS (9)
  - Anxiety [Unknown]
  - Vision blurred [Unknown]
  - Panic attack [Unknown]
  - Agitation [Unknown]
  - Drug withdrawal syndrome [Unknown]
  - Hyperhidrosis [Unknown]
  - Pain [Unknown]
  - Headache [Unknown]
  - Insomnia [Unknown]
